FAERS Safety Report 23291057 (Version 1)
Quarter: 2023Q4

REPORT INFORMATION
  Report Type: Spontaneous
  Country: US (occurrence: US)
  Receive Date: 20231213
  Receipt Date: 20231213
  Transmission Date: 20240109
  Serious: Yes (Death, Other)
  Sender: FDA-Public Use
  Company Number: US-SCIEGENP-2023SCLIT00743

PATIENT
  Age: 39 Year
  Sex: Female

DRUGS (5)
  1. LAMOTRIGINE [Suspect]
     Active Substance: LAMOTRIGINE
     Indication: Epilepsy
     Dosage: 75  MG TO 100  MG
     Route: 065
  2. PREDNISONE [Concomitant]
     Active Substance: PREDNISONE
     Dosage: FOR 5 DAYS
     Route: 065
  3. PREDNISONE [Concomitant]
     Active Substance: PREDNISONE
     Dosage: FOR 3 DAYS
     Route: 065
  4. PREDNISONE [Concomitant]
     Active Substance: PREDNISONE
     Dosage: FOR 2 DAYS
     Route: 065
  5. PREDNISONE [Concomitant]
     Active Substance: PREDNISONE
     Dosage: FOR 2 DAYS
     Route: 065

REACTIONS (4)
  - Hepatic necrosis [Fatal]
  - Thyroiditis [Fatal]
  - Eosinophilic myocarditis [Fatal]
  - Drug reaction with eosinophilia and systemic symptoms [Fatal]
